FAERS Safety Report 7314167-9 (Version None)
Quarter: 2011Q1

REPORT INFORMATION
  Report Type: 
  Country: None (occurrence: None)
  Receive Date: 20110225
  Receipt Date: 20100625
  Transmission Date: 20110831
  Serious: No
  Sender: FDA-Public Use
  Company Number: US-MYLANLABS-2010S1009240

PATIENT
  Sex: Male

DRUGS (4)
  1. CLARAVIS [Suspect]
  2. SOTRET [Suspect]
     Indication: ACNE CYSTIC
  3. CLARAVIS [Suspect]
     Indication: ACNE CYSTIC
  4. AMNESTEEM [Suspect]
     Indication: ACNE CYSTIC

REACTIONS (1)
  - HEPATIC ENZYME INCREASED [None]
